FAERS Safety Report 16904073 (Version 1)
Quarter: 2019Q4

REPORT INFORMATION
  Report Type: Spontaneous
  Country: US (occurrence: US)
  Receive Date: 20191009
  Receipt Date: 20191009
  Transmission Date: 20200122
  Serious: Yes (Hospitalization)
  Sender: FDA-Public Use
  Company Number: None

PATIENT
  Age: 67 Year
  Sex: Male
  Weight: 91 kg

DRUGS (1)
  1. RUXOLITINIB [Suspect]
     Active Substance: RUXOLITINIB
     Indication: PRODUCT USED FOR UNKNOWN INDICATION
     Route: 048
     Dates: start: 20190306

REACTIONS (5)
  - Blood urine present [None]
  - Constipation [None]
  - Occult blood positive [None]
  - Nephrolithiasis [None]
  - Acute kidney injury [None]

NARRATIVE: CASE EVENT DATE: 20190327
